FAERS Safety Report 23731335 (Version 1)
Quarter: 2024Q2

REPORT INFORMATION
  Report Type: Spontaneous
  Country: US (occurrence: None)
  Receive Date: 20240411
  Receipt Date: 20240411
  Transmission Date: 20240716
  Serious: No
  Sender: FDA-Public Use
  Company Number: 2024A086431

PATIENT

DRUGS (1)
  1. CRESTOR [Suspect]
     Active Substance: ROSUVASTATIN CALCIUM
     Route: 048

REACTIONS (6)
  - Drug hypersensitivity [Unknown]
  - Product use issue [Unknown]
  - Muscle injury [Unknown]
  - Hypokinesia [Unknown]
  - Muscle atrophy [Unknown]
  - Herpes zoster [Unknown]
